FAERS Safety Report 7659348-X (Version None)
Quarter: 2011Q3

REPORT INFORMATION
  Report Type: 
  Country: None (occurrence: None)
  Receive Date: 20110805
  Receipt Date: 20110728
  Transmission Date: 20111222
  Serious: Yes (Hospitalization, Other)
  Sender: FDA-Public Use
  Company Number: US-AMGEN-USASP2011031303

PATIENT
  Age: 71 Year
  Sex: Male
  Weight: 73.7 kg

DRUGS (3)
  1. VITAMIN D [Concomitant]
  2. CALCIUM ACETATE [Concomitant]
  3. XGEVA [Suspect]
     Indication: METASTASES TO BONE
     Dosage: 120 MG, UNK
     Route: 058
     Dates: start: 20110527

REACTIONS (3)
  - ELECTROCARDIOGRAM ABNORMAL [None]
  - HYPOPHOSPHATAEMIA [None]
  - HYPOCALCAEMIA [None]
